FAERS Safety Report 18425230 (Version 1)
Quarter: 2020Q4

REPORT INFORMATION
  Report Type: Spontaneous
  Country: US (occurrence: US)
  Receive Date: 20201023
  Receipt Date: 20201023
  Transmission Date: 20210114
  Serious: Yes (Other)
  Sender: FDA-Public Use
  Company Number: None

PATIENT
  Age: 78 Year
  Sex: Female

DRUGS (6)
  1. GABAPENTIN 100MG [Concomitant]
     Active Substance: GABAPENTIN
     Dates: start: 20110101
  2. HYDROCHLOROTHIAZIDE 25MG [Concomitant]
     Active Substance: HYDROCHLOROTHIAZIDE
     Dates: start: 20110101
  3. ASACOL [Concomitant]
     Active Substance: MESALAMINE
     Dates: start: 20110101
  4. LAMOTRIGINE 200MG [Concomitant]
     Active Substance: LAMOTRIGINE
     Dates: start: 20110101
  5. SIMVASTATIN 20MG [Concomitant]
     Active Substance: SIMVASTATIN
     Dates: start: 20110320
  6. PIQRAY [Suspect]
     Active Substance: ALPELISIB
     Indication: BREAST CANCER
     Route: 048
     Dates: start: 20200713

REACTIONS (1)
  - Rash [None]

NARRATIVE: CASE EVENT DATE: 20201001
